FAERS Safety Report 25742999 (Version 1)
Quarter: 2025Q3

REPORT INFORMATION
  Report Type: Spontaneous
  Country: EU (occurrence: EU)
  Receive Date: 20250830
  Receipt Date: 20250830
  Transmission Date: 20251020
  Serious: Yes (Other)
  Sender: CSL BEHRING
  Company Number: EU-BEH-2025216670

PATIENT
  Age: 8 Year
  Sex: Male

DRUGS (4)
  1. PRIVIGEN [Suspect]
     Active Substance: HUMAN IMMUNOGLOBULIN G
     Indication: Hypogammaglobulinaemia
     Route: 042
  2. PRIVIGEN [Suspect]
     Active Substance: HUMAN IMMUNOGLOBULIN G
     Indication: Infection
  3. KYMRIAH [Concomitant]
     Active Substance: TISAGENLECLEUCEL
     Indication: Acute leukaemia
  4. GENETICALLY-MODIFIED AUTOLOGOUS T CELLS NOS [Concomitant]
     Active Substance: GENETICALLY-MODIFIED AUTOLOGOUS T CELLS NOS
     Indication: Acute leukaemia

REACTIONS (3)
  - Leukaemia in remission [Recovering/Resolving]
  - Drug ineffective [Unknown]
  - Prescribed underdose [Unknown]
